FAERS Safety Report 23035391 (Version 1)
Quarter: 2023Q4

REPORT INFORMATION
  Report Type: Report from Study
  Country: US (occurrence: US)
  Receive Date: 20231005
  Receipt Date: 20231005
  Transmission Date: 20240110
  Serious: Yes (Death, Other)
  Sender: FDA-Public Use
  Company Number: US-ABBVIE-5437146

PATIENT
  Sex: Female

DRUGS (1)
  1. RINVOQ [Suspect]
     Active Substance: UPADACITINIB
     Indication: Rheumatoid arthritis
     Dosage: STRENGTH 15 MILLIGRAMS
     Route: 048
     Dates: start: 202301

REACTIONS (3)
  - Myocardial infarction [Fatal]
  - Cholelithiasis [Fatal]
  - Unevaluable event [Fatal]

NARRATIVE: CASE EVENT DATE: 20230101
